FAERS Safety Report 6564875-2 (Version None)
Quarter: 2010Q1

REPORT INFORMATION
  Report Type: 
  Country: None (occurrence: None)
  Receive Date: 20100201
  Receipt Date: 20100125
  Transmission Date: 20100710
  Serious: Yes (Other)
  Sender: FDA-Public Use
  Company Number: FR-SANOFI-AVENTIS-2010SA004263

PATIENT
  Age: 53 Year
  Sex: Male

DRUGS (3)
  1. ENOXAPARIN SODIUM [Suspect]
     Indication: PULMONARY EMBOLISM
     Route: 058
     Dates: start: 20100107
  2. WARFARIN SODIUM [Suspect]
     Indication: PULMONARY EMBOLISM
     Route: 048
     Dates: start: 20100107, end: 20100112
  3. PARACETAMOL [Concomitant]
     Indication: PAIN
     Route: 048
     Dates: start: 20100107, end: 20100111

REACTIONS (1)
  - HEPATITIS [None]
